FAERS Safety Report 5622608-8 (Version None)
Quarter: 2008Q1

REPORT INFORMATION
  Report Type: 
  Country: None (occurrence: None)
  Receive Date: 20080211
  Receipt Date: 20080211
  Transmission Date: 20080703
  Serious: Yes (Hospitalization)
  Sender: FDA-Public Use
  Company Number: None

PATIENT
  Age: 61 Year
  Sex: Male

DRUGS (2)
  1. CYCLOPHOSPHAMIDE [Suspect]
     Dosage: 1250MG OTHER IV
     Route: 042
     Dates: start: 20070918, end: 20071106
  2. DOXORUBICIN HCL [Suspect]
     Dosage: 42MG OTHER IV
     Route: 042
     Dates: start: 20070918, end: 20071206

REACTIONS (1)
  - PANCYTOPENIA [None]
